FAERS Safety Report 7521686-9 (Version None)
Quarter: 2011Q2

REPORT INFORMATION
  Report Type: 
  Country: None (occurrence: None)
  Receive Date: 20110524
  Receipt Date: 20110511
  Transmission Date: 20111010
  Serious: Yes (Other)
  Sender: FDA-Public Use
  Company Number: PI-05650

PATIENT
  Age: 58 Year
  Sex: Male

DRUGS (1)
  1. CHLORAPREP (2%CHG/70%IPA) WITH TINT (FD+C YELLOW #6) [Suspect]
     Indication: PREOPERATIVE CARE
     Dosage: 26ML, ONCE, TOPICAL
     Route: 061
     Dates: start: 20110505

REACTIONS (1)
  - BURNS SECOND DEGREE [None]
